FAERS Safety Report 14991317 (Version 1)
Quarter: 2018Q2

REPORT INFORMATION
  Report Type: Spontaneous
  Country: RU (occurrence: RU)
  Receive Date: 20180608
  Receipt Date: 20180608
  Transmission Date: 20180711
  Serious: Yes (Death)
  Sender: FDA-Public Use
  Company Number: RU-PFIZER INC-2018230284

PATIENT
  Age: 57 Year
  Sex: Male

DRUGS (4)
  1. CELEBREX [Suspect]
     Active Substance: CELECOXIB
     Indication: BACK PAIN
  2. MYDOCALM /00293002/ [Concomitant]
     Active Substance: TOLPERISONE HYDROCHLORIDE
     Indication: BACK PAIN
  3. MYDOCALM /00293002/ [Concomitant]
     Active Substance: TOLPERISONE HYDROCHLORIDE
     Indication: OSTEOCHONDROSIS
     Dosage: UNK
  4. CELEBREX [Suspect]
     Active Substance: CELECOXIB
     Indication: OSTEOCHONDROSIS
     Dosage: UNK

REACTIONS (1)
  - Sudden cardiac death [Fatal]
